FAERS Safety Report 11317259 (Version 1)
Quarter: 2015Q3

REPORT INFORMATION
  Report Type: Spontaneous
  Country: US (occurrence: None)
  Receive Date: 20150727
  Receipt Date: 20150727
  Transmission Date: 20151125
  Serious: No
  Sender: FDA-Public Use
  Company Number: None

PATIENT
  Age: 47 Year
  Sex: Male
  Weight: 71.67 kg

DRUGS (1)
  1. ATORVASTATIN 10 MG [Suspect]
     Active Substance: ATORVASTATIN
     Dosage: 1 PILL
     Route: 048

REACTIONS (2)
  - Cognitive disorder [None]
  - Amnesia [None]

NARRATIVE: CASE EVENT DATE: 20150602
